FAERS Safety Report 19056624 (Version 1)
Quarter: 2021Q1

REPORT INFORMATION
  Report Type: Report from Study
  Country: CN (occurrence: CN)
  Receive Date: 20210325
  Receipt Date: 20210325
  Transmission Date: 20210420
  Serious: Yes (Death)
  Sender: FDA-Public Use
  Company Number: CN-PFIZER INC-2021314115

PATIENT

DRUGS (2)
  1. GARLICIN [Concomitant]
     Active Substance: DIETARY SUPPLEMENT
     Dosage: 120 MG, 1X/DAY (VENOUS INSTILLATION)
  2. FLUCONAZOLE. [Suspect]
     Active Substance: FLUCONAZOLE
     Dosage: 100 MG, 1X/DAY (VENOUS INSTILLATION)

REACTIONS (1)
  - Drug ineffective [Fatal]
